FAERS Safety Report 21361795 (Version 1)
Quarter: 2022Q3

REPORT INFORMATION
  Report Type: Spontaneous
  Country: JP (occurrence: JP)
  Receive Date: 20220922
  Receipt Date: 20220922
  Transmission Date: 20221026
  Serious: Yes (Other)
  Sender: FDA-Public Use
  Company Number: JP-AMGEN-JPNSP2022160587

PATIENT
  Sex: Female

DRUGS (1)
  1. ADALIMUMAB [Suspect]
     Active Substance: ADALIMUMAB
     Indication: Takayasu^s arteritis
     Route: 065

REACTIONS (3)
  - Takayasu^s arteritis [Unknown]
  - Off label use [Unknown]
  - Maternal exposure during pregnancy [Unknown]
